FAERS Safety Report 9712547 (Version 2)
Quarter: 2013Q4

REPORT INFORMATION
  Report Type: Spontaneous
  Country: US (occurrence: US)
  Receive Date: 20131126
  Receipt Date: 20131126
  Transmission Date: 20140711
  Serious: No
  Sender: FDA-Public Use
  Company Number: US-BRISTOL-MYERS SQUIBB COMPANY-18885657

PATIENT
  Age: 52 Year
  Sex: Female

DRUGS (4)
  1. BYDUREON 2MG SUSPENSION [Suspect]
     Indication: TYPE 2 DIABETES MELLITUS
     Dosage: NO OF INJECTIONS:9
     Route: 058
     Dates: start: 20130509
  2. BYSTOLIC [Concomitant]
  3. COZAAR [Concomitant]
  4. SYNTHROID [Concomitant]

REACTIONS (2)
  - Injection site haemorrhage [Recovered/Resolved with Sequelae]
  - Injection site nodule [Not Recovered/Not Resolved]
